FAERS Safety Report 24306209 (Version 1)
Quarter: 2024Q3

REPORT INFORMATION
  Report Type: Spontaneous
  Country: US (occurrence: US)
  Receive Date: 20240911
  Receipt Date: 20240911
  Transmission Date: 20241017
  Serious: Yes (Other)
  Sender: APOTEX
  Company Number: US-APOTEX-2024AP010326

PATIENT
  Sex: Male

DRUGS (7)
  1. MYCOPHENOLATE SODIUM [Suspect]
     Active Substance: MYCOPHENOLATE SODIUM
     Indication: Lung transplant
     Dosage: UNK
     Route: 065
  2. DANAZOL [Suspect]
     Active Substance: DANAZOL
     Indication: Acquired gene mutation
     Dosage: UNK
     Route: 065
     Dates: start: 201903
  3. DANAZOL [Suspect]
     Active Substance: DANAZOL
     Dosage: UNK, ESCALATED DOSE
     Route: 065
     Dates: start: 201904, end: 202205
  4. PREDNISONE [Suspect]
     Active Substance: PREDNISONE
     Indication: Lung transplant
     Dosage: UNK
     Route: 065
  5. TACROLIMUS [Suspect]
     Active Substance: TACROLIMUS
     Indication: Lung transplant
     Dosage: UNK
     Route: 065
  6. EVEROLIMUS [Suspect]
     Active Substance: EVEROLIMUS
     Indication: Steroid therapy
     Dosage: UNK
     Route: 065
     Dates: start: 202001, end: 202011
  7. EVEROLIMUS [Suspect]
     Active Substance: EVEROLIMUS
     Dosage: UNK
     Route: 065
     Dates: start: 2020, end: 202108

REACTIONS (1)
  - Pancreatitis [Recovered/Resolved]
